FAERS Safety Report 21799695 (Version 1)
Quarter: 2022Q4

REPORT INFORMATION
  Report Type: Spontaneous
  Country: CA (occurrence: CA)
  Receive Date: 20221230
  Receipt Date: 20221230
  Transmission Date: 20230113
  Serious: Yes (Life-Threatening)
  Sender: FDA-Public Use
  Company Number: CA-TEVA-2022-CA-2840719

PATIENT
  Age: 39 Year
  Sex: Female
  Weight: 104 kg

DRUGS (1)
  1. QUETIAPINE FUMARATE [Suspect]
     Active Substance: QUETIAPINE FUMARATE
     Indication: Insomnia
     Dosage: 75 MILLIGRAM DAILY;
     Route: 048

REACTIONS (2)
  - Hyperventilation [Not Recovered/Not Resolved]
  - Thrombosis [Not Recovered/Not Resolved]
